FAERS Safety Report 9172773 (Version 1)
Quarter: 2012Q4

REPORT INFORMATION
  Report Type: 
  Country: US (occurrence: US)
  Receive Date: 20120911
  Receipt Date: 20120911
  Transmission Date: 20130627
  Serious: Yes (Other)
  Sender: FDA-Public Use
  Company Number: US-AMGEN-USASP2012056897

PATIENT
  Sex: Female

DRUGS (2)
  1. NEULASTA [Suspect]
     Indication: PROPHYLAXIS
     Dosage: 4 mg, UNK
  2. ANTINEOPLASTIC AGENTS [Concomitant]

REACTIONS (3)
  - Neutrophil count decreased [Not Recovered/Not Resolved]
  - White blood cell count decreased [Not Recovered/Not Resolved]
  - Red blood cell count decreased [Not Recovered/Not Resolved]
